FAERS Safety Report 4648549-0 (Version None)
Quarter: 2005Q2

REPORT INFORMATION
  Report Type: 
  Country: None (occurrence: None)
  Receive Date: 20050427
  Receipt Date: 20050408
  Transmission Date: 20051028
  Serious: Yes (Death)
  Sender: FDA-Public Use
  Company Number: CA_050407983

PATIENT
  Age: 60 Year

DRUGS (1)
  1. XIGRIS [Suspect]
     Dates: start: 20050403

REACTIONS (1)
  - SEPSIS [None]
